FAERS Safety Report 12884769 (Version 1)
Quarter: 2016Q4

REPORT INFORMATION
  Report Type: Spontaneous
  Country: IT (occurrence: IT)
  Receive Date: 20161026
  Receipt Date: 20161026
  Transmission Date: 20170207
  Serious: Yes (Other)
  Sender: FDA-Public Use
  Company Number: IT-BRISTOL-MYERS SQUIBB COMPANY-BMS-2016-086258

PATIENT
  Age: 46 Year
  Sex: Male
  Weight: 62 kg

DRUGS (4)
  1. RITONAVIR. [Suspect]
     Active Substance: RITONAVIR
     Indication: HIV INFECTION
     Dosage: 100 MG, UNK
     Route: 065
     Dates: start: 2007
  2. REYATAZ [Suspect]
     Active Substance: ATAZANAVIR SULFATE
     Indication: HIV INFECTION
     Dosage: 300 MG, UNK
     Route: 065
     Dates: start: 2007
  3. EMTRICITABINE [Suspect]
     Active Substance: EMTRICITABINE
     Indication: HIV INFECTION
     Route: 065
  4. TENOFOVIR [Suspect]
     Active Substance: TENOFOVIR
     Indication: HIV INFECTION
     Route: 065

REACTIONS (4)
  - Pancytopenia [Unknown]
  - Orchitis [Unknown]
  - Parotitis [Unknown]
  - Hypersplenism [Unknown]

NARRATIVE: CASE EVENT DATE: 201409
